FAERS Safety Report 6015809-0 (Version None)
Quarter: 2008Q4

REPORT INFORMATION
  Report Type: 
  Country: None (occurrence: None)
  Receive Date: 20081219
  Receipt Date: 20081219
  Transmission Date: 20090506
  Serious: No
  Sender: FDA-Public Use
  Company Number: None

PATIENT
  Sex: Female
  Weight: 68.18 kg

DRUGS (8)
  1. SIMVASTATIN [Suspect]
     Dosage: 20MG TABLET 20 MG QHS ORAL
     Route: 048
     Dates: start: 20080819, end: 20081218
  2. ASPIRIN [Concomitant]
  3. DIOVAN HCT [Concomitant]
  4. EVISTA [Concomitant]
  5. LIDODERM [Concomitant]
  6. NEURONTIN [Concomitant]
  7. NORTRIPTYLINE HCL [Concomitant]
  8. VIDAMIN D3 (CHOLECALCIFEROL) [Concomitant]

REACTIONS (1)
  - MYALGIA [None]
